FAERS Safety Report 7088994-X (Version None)
Quarter: 2010Q4

REPORT INFORMATION
  Report Type: 
  Country: None (occurrence: None)
  Receive Date: 20101029
  Receipt Date: 20101013
  Transmission Date: 20110411
  Serious: Yes (Other)
  Sender: FDA-Public Use
  Company Number: 011463

PATIENT
  Age: 31 Year
  Sex: Male

DRUGS (1)
  1. MACUGEN [Suspect]
     Dosage: INTRAOCULAR
     Route: 031
     Dates: start: 20100921, end: 20100921

REACTIONS (5)
  - ERYTHEMA OF EYELID [None]
  - EYE SWELLING [None]
  - LACRIMATION INCREASED [None]
  - OCULAR HYPERAEMIA [None]
  - PRURITUS [None]
